FAERS Safety Report 8959579 (Version 1)
Quarter: 2012Q4

REPORT INFORMATION
  Report Type: 
  Country: US (occurrence: US)
  Receive Date: 20121212
  Receipt Date: 20121212
  Transmission Date: 20130627
  Serious: Yes (Death, Life-Threatening, Other)
  Sender: FDA-Public Use
  Company Number: US-CELGENEUS-163-21880-12091652

PATIENT
  Sex: Female

DRUGS (4)
  1. REVLIMID [Suspect]
     Indication: PLASMA CELL LEUKEMIA
     Dosage: 15 Milligram
     Route: 048
     Dates: start: 20120515
  2. REVLIMID [Suspect]
     Dosage: 10 Milligram
     Route: 048
     Dates: start: 20120911
  3. VELCADE [Concomitant]
     Indication: DRUG USE FOR UNKNOWN INDICATION
     Dosage: 1.3 milligram/sq. meter
     Route: 065
     Dates: start: 20120518, end: 20120917
  4. DECADRON [Concomitant]
     Indication: DRUG USE FOR UNKNOWN INDICATION
     Dosage: 20 Milligram
     Route: 065
     Dates: start: 20120518, end: 20120917

REACTIONS (4)
  - Cervix carcinoma [Fatal]
  - Plasma cell leukaemia [Fatal]
  - Anaemia [Not Recovered/Not Resolved]
  - Thrombocytopenia [Not Recovered/Not Resolved]
